FAERS Safety Report 23078614 (Version 1)
Quarter: 2023Q4

REPORT INFORMATION
  Report Type: Spontaneous
  Country: IL (occurrence: IL)
  Receive Date: 20231018
  Receipt Date: 20231018
  Transmission Date: 20240110
  Serious: Yes (Other)
  Sender: FDA-Public Use
  Company Number: IL-PFIZER INC- PV202300168275

PATIENT
  Age: 42 Year
  Sex: Female

DRUGS (1)
  1. ELETRIPTAN HYDROBROMIDE [Suspect]
     Active Substance: ELETRIPTAN HYDROBROMIDE
     Indication: Product used for unknown indication
     Dosage: UNK, PRN (DOSE 40 AS NEEDED)
     Route: 065
     Dates: start: 20180101

REACTIONS (2)
  - Palpitations [Unknown]
  - Chest pain [Unknown]
